FAERS Safety Report 8967721 (Version 1)
Quarter: 2012Q4

REPORT INFORMATION
  Report Type: Spontaneous
  Country: US (occurrence: None)
  Receive Date: 20121213
  Receipt Date: 20121213
  Transmission Date: 20130627
  Serious: Yes (Other)
  Sender: FDA-Public Use
  Company Number: None

PATIENT
  Sex: Female

DRUGS (1)
  1. STELARA 90MG CENTOCOR [Suspect]
     Indication: PSORIASIS
     Dosage: 90mg every 12 weeks sq
     Route: 058
     Dates: start: 20120823

REACTIONS (1)
  - Ventricular extrasystoles [None]
